FAERS Safety Report 6811405-3 (Version None)
Quarter: 2010Q2

REPORT INFORMATION
  Report Type: 
  Country: None (occurrence: None)
  Receive Date: 20100630
  Receipt Date: 20100504
  Transmission Date: 20101027
  Serious: No
  Sender: FDA-Public Use
  Company Number: US-AMGEN-KDL410789

PATIENT
  Sex: Female
  Weight: 54.5 kg

DRUGS (14)
  1. PROCRIT [Suspect]
     Indication: RENAL FAILURE CHRONIC
     Dates: start: 20100416
  2. PEGASYS [Concomitant]
  3. RIBAVIRIN [Concomitant]
  4. DOXAZOSIN MESYLATE [Concomitant]
  5. BENICAR [Concomitant]
  6. PREMARIN [Concomitant]
  7. POTASSIUM [Concomitant]
  8. TOPROL-XL [Concomitant]
  9. INSPRA [Concomitant]
  10. VITAMIN D [Concomitant]
  11. VITAMIN C [Concomitant]
  12. VITAMIN E [Concomitant]
  13. FISH OIL [Concomitant]
  14. MAGNESIUM [Concomitant]

REACTIONS (1)
  - NIGHT SWEATS [None]
